FAERS Safety Report 23305595 (Version 2)
Quarter: 2024Q2

REPORT INFORMATION
  Report Type: Spontaneous
  Country: CA (occurrence: CA)
  Receive Date: 20231218
  Receipt Date: 20240516
  Transmission Date: 20240716
  Serious: Yes (Other)
  Sender: FDA-Public Use
  Company Number: CA-002147023-NVSC2023CA263862

PATIENT
  Age: 62 Year
  Sex: Male

DRUGS (8)
  1. CYCLOSPORINE [Suspect]
     Active Substance: CYCLOSPORINE
     Indication: Prophylaxis against graft versus host disease
     Dosage: UNK
     Route: 065
  2. METHOTREXATE [Suspect]
     Active Substance: METHOTREXATE
     Indication: Prophylaxis against graft versus host disease
     Dosage: UNK
     Route: 065
  3. BUSULFAN [Concomitant]
     Active Substance: BUSULFAN
     Indication: Bone marrow conditioning regimen
     Dosage: UNK
     Route: 065
  4. BUSULFAN [Concomitant]
     Active Substance: BUSULFAN
     Indication: Acute myeloid leukaemia
  5. BUSULFAN [Concomitant]
     Active Substance: BUSULFAN
     Indication: Allogenic stem cell transplantation
  6. FLUDARABINE [Concomitant]
     Active Substance: FLUDARABINE PHOSPHATE
     Indication: Bone marrow conditioning regimen
     Dosage: UNK
     Route: 065
  7. FLUDARABINE [Concomitant]
     Active Substance: FLUDARABINE PHOSPHATE
     Indication: Acute myeloid leukaemia
  8. FLUDARABINE [Concomitant]
     Active Substance: FLUDARABINE PHOSPHATE
     Indication: Allogenic stem cell transplantation

REACTIONS (3)
  - Glomerulonephritis membranous [Unknown]
  - Thrombotic microangiopathy [Unknown]
  - Drug ineffective [Unknown]
